FAERS Safety Report 6059846-9 (Version None)
Quarter: 2009Q1

REPORT INFORMATION
  Report Type: 
  Country: None (occurrence: None)
  Receive Date: 20090130
  Receipt Date: 20090119
  Transmission Date: 20090719
  Serious: Yes (Other)
  Sender: FDA-Public Use
  Company Number: DE-JNJFOC-20090104742

PATIENT
  Sex: Male

DRUGS (1)
  1. REMICADE [Suspect]
     Indication: POLYCHONDRITIS
     Route: 042

REACTIONS (1)
  - CARDIAC DISORDER [None]
